FAERS Safety Report 5137993-3 (Version None)
Quarter: 2006Q4

REPORT INFORMATION
  Report Type: 
  Country: None (occurrence: None)
  Receive Date: 20061030
  Receipt Date: 20060322
  Transmission Date: 20070319
  Serious: No
  Sender: FDA-Public Use
  Company Number: US-GLAXOSMITHKLINE-A0599190A

PATIENT
  Age: 9 Year
  Sex: Male
  Weight: 28.2 kg

DRUGS (3)
  1. ADVAIR HFA [Suspect]
     Indication: DRUG USE FOR UNKNOWN INDICATION
     Dosage: 1PUFF TWICE PER DAY
     Route: 055
     Dates: start: 20050419, end: 20060207
  2. ALBUTEROL [Concomitant]
     Dosage: 2PUFF AS REQUIRED
     Route: 055
  3. ZYRTEC [Concomitant]
     Dosage: 1TAB AT NIGHT
     Route: 048

REACTIONS (1)
  - ORAL CANDIDIASIS [None]
